FAERS Safety Report 5760405-3 (Version None)
Quarter: 2008Q2

REPORT INFORMATION
  Report Type: 
  Country: None (occurrence: None)
  Receive Date: 20080605
  Receipt Date: 20080528
  Transmission Date: 20081010
  Serious: Yes (Hospitalization)
  Sender: FDA-Public Use
  Company Number: IT-PFIZER INC-2008046384

PATIENT
  Sex: Male

DRUGS (7)
  1. NORVASC [Suspect]
     Indication: HYPERTENSION
     Route: 048
     Dates: start: 20071220, end: 20080208
  2. TICLOPIDINE HYDROCHLORIDE [Concomitant]
     Route: 048
  3. CARDURA [Concomitant]
     Route: 048
  4. TRIATEC [Concomitant]
     Route: 048
  5. LASIX [Concomitant]
     Route: 048
  6. RABEPRAZOLE SODIUM [Concomitant]
     Route: 048
  7. ENAPREN [Concomitant]
     Route: 048

REACTIONS (1)
  - MYOPATHY [None]
